FAERS Safety Report 7395753-7 (Version None)
Quarter: 2011Q2

REPORT INFORMATION
  Report Type: 
  Country: None (occurrence: None)
  Receive Date: 20110405
  Receipt Date: 20091209
  Transmission Date: 20111010
  Serious: Yes (Other)
  Sender: FDA-Public Use
  Company Number: PHHY2009DE67582

PATIENT
  Sex: Female

DRUGS (1)
  1. EXTAVIA [Suspect]
     Indication: MULTIPLE SCLEROSIS
     Dosage: UNK
     Route: 058
     Dates: start: 20091112

REACTIONS (4)
  - DIZZINESS [None]
  - LENTICULAR OPACITIES [None]
  - VISUAL IMPAIRMENT [None]
  - HEAD DISCOMFORT [None]
